FAERS Safety Report 25330609 (Version 1)
Quarter: 2025Q2

REPORT INFORMATION
  Report Type: Spontaneous
  Country: US (occurrence: None)
  Receive Date: 20250516
  Receipt Date: 20250516
  Transmission Date: 20250716
  Serious: Yes (Hospitalization)
  Sender: FDA-CTU
  Company Number: None

PATIENT
  Age: 76 Year
  Sex: Male
  Weight: 74.25 kg

DRUGS (7)
  1. TADALAFIL [Suspect]
     Active Substance: TADALAFIL
     Indication: Erectile dysfunction
     Dosage: FREQUENCY : DAILY;?
     Route: 048
     Dates: start: 20250514, end: 20250514
  2. DUTASTERIDE [Concomitant]
     Active Substance: DUTASTERIDE
  3. FAMOTIDINE [Concomitant]
     Active Substance: FAMOTIDINE
  4. Atrovent Beni [Concomitant]
  5. SILDENAFIL [Concomitant]
     Active Substance: SILDENAFIL
  6. Vit A [Concomitant]
  7. baby aspiri [Concomitant]

REACTIONS (3)
  - Asthenia [None]
  - Haemorrhage [None]
  - Gait disturbance [None]

NARRATIVE: CASE EVENT DATE: 20250514
